FAERS Safety Report 25135064 (Version 1)
Quarter: 2025Q1

REPORT INFORMATION
  Report Type: Spontaneous
  Country: US (occurrence: None)
  Receive Date: 20250327
  Receipt Date: 20250327
  Transmission Date: 20250408
  Serious: Yes (Other)
  Sender: FDA-CTU
  Company Number: None

PATIENT
  Age: 58 Year
  Sex: Male
  Weight: 88.0 kg

DRUGS (4)
  1. CORTICOTROPIN [Suspect]
     Active Substance: CORTICOTROPIN
     Indication: Multiple sclerosis
     Dates: start: 20250313
  2. Vitamin D Oral Tablet 25 MCG [Concomitant]
  3. amLODIPine Besylate Oral Tablet 5 M [Concomitant]
  4. Losartan Potassium Oral Tablet 50 M [Concomitant]

REACTIONS (3)
  - Fatigue [None]
  - Psychomotor hyperactivity [None]
  - Muscle spasms [None]

NARRATIVE: CASE EVENT DATE: 20250327
